FAERS Safety Report 21907058 (Version 3)
Quarter: 2023Q1

REPORT INFORMATION
  Report Type: Spontaneous
  Country: US (occurrence: US)
  Receive Date: 20230125
  Receipt Date: 20230216
  Transmission Date: 20230418
  Serious: Yes (Other)
  Sender: FDA-Public Use
  Company Number: US-BRISTOL-MYERS SQUIBB COMPANY-2023-010432

PATIENT
  Age: 68 Year
  Sex: Female
  Weight: 67.59 kg

DRUGS (2)
  1. ORENCIA [Suspect]
     Active Substance: ABATACEPT
     Indication: Psoriatic arthropathy
     Dosage: 125 MG/ML AUTOINJECTOR
     Route: 058
     Dates: start: 20230111
  2. ORENCIA [Suspect]
     Active Substance: ABATACEPT
     Indication: Fibromyalgia

REACTIONS (4)
  - Device malfunction [Unknown]
  - Needle issue [Unknown]
  - Injection site haemorrhage [Unknown]
  - Device failure [Unknown]
